FAERS Safety Report 5027918-3 (Version None)
Quarter: 2006Q2

REPORT INFORMATION
  Report Type: 
  Country: None (occurrence: None)
  Receive Date: 20060612
  Receipt Date: 20060525
  Transmission Date: 20061013
  Serious: Yes (Hospitalization)
  Sender: FDA-Public Use
  Company Number: 2006US001118

PATIENT
  Age: 43 Year
  Sex: Female
  Weight: 81.6 kg

DRUGS (3)
  1. AMEVIVE [Suspect]
     Indication: PSORIASIS
     Dosage: 15 MG, UNK, INTRAMUSCULAR
     Route: 030
     Dates: start: 20060220, end: 20060327
  2. AMEVIVE [Suspect]
     Indication: PSORIASIS
     Dosage: 15 MG, UNK, INTRAMUSCULAR
     Route: 030
     Dates: start: 20060417, end: 20060424
  3. AMEVIVE [Suspect]
     Indication: PSORIASIS
     Dosage: 15 MG, UNK, INTRAMUSCULAR
     Route: 030
     Dates: start: 20060508

REACTIONS (6)
  - CONDITION AGGRAVATED [None]
  - DERMATITIS EXFOLIATIVE [None]
  - IMMOBILE [None]
  - PSORIASIS [None]
  - RASH PUSTULAR [None]
  - STAPHYLOCOCCAL INFECTION [None]
